FAERS Safety Report 9909190 (Version 1)
Quarter: 2014Q1

REPORT INFORMATION
  Report Type: Spontaneous
  Country: CA (occurrence: CA)
  Receive Date: 20140219
  Receipt Date: 20140219
  Transmission Date: 20141002
  Serious: Yes (Hospitalization, Other)
  Sender: FDA-Public Use
  Company Number: CA-009507513-1402CAN006358

PATIENT
  Age: 80 Year
  Sex: Male

DRUGS (7)
  1. ZOCOR [Suspect]
     Indication: DYSLIPIDAEMIA
     Dosage: 80 MG, QD
     Route: 048
     Dates: start: 1995
  2. ANDROCUR [Interacting]
     Indication: PROSTATE CANCER METASTATIC
     Dosage: 100 MG, BID
     Route: 048
     Dates: start: 20061127, end: 20061230
  3. ATACAND [Concomitant]
     Dosage: UNK
     Route: 065
  4. COUMADIN [Concomitant]
     Route: 065
  5. FLOMAX (MORNIFLUMATE) [Concomitant]
     Route: 065
  6. DILTIAZEM HYDROCHLORIDE [Concomitant]
     Route: 065
  7. ASPIRIN [Concomitant]
     Route: 065

REACTIONS (11)
  - Proteinuria [Recovered/Resolved]
  - Haematuria [Recovered/Resolved]
  - Blood lactate dehydrogenase increased [Recovered/Resolved]
  - Blood creatinine increased [Recovered/Resolved]
  - Muscular weakness [Recovered/Resolved]
  - Blood bilirubin increased [Recovered/Resolved]
  - Myoglobinuria [Recovered/Resolved]
  - Myalgia [Recovered/Resolved]
  - Alanine aminotransferase increased [Recovered/Resolved]
  - Aspartate aminotransferase increased [Recovered/Resolved]
  - Blood creatine phosphokinase increased [Recovered/Resolved]
